FAERS Safety Report 11216089 (Version 1)
Quarter: 2015Q2

REPORT INFORMATION
  Report Type: Spontaneous
  Country: US (occurrence: None)
  Receive Date: 20150623
  Receipt Date: 20150623
  Transmission Date: 20150821
  Serious: Yes (Hospitalization)
  Sender: FDA-Public Use
  Company Number: None

PATIENT
  Age: 65 Year
  Sex: Male
  Weight: 90.72 kg

DRUGS (2)
  1. CETUXIMAB [Suspect]
     Active Substance: CETUXIMAB
     Indication: SQUAMOUS CELL CARCINOMA
     Route: 042
     Dates: start: 20150408
  2. ERLOTINIB [Suspect]
     Active Substance: ERLOTINIB
     Indication: SQUAMOUS CELL CARCINOMA
     Route: 048
     Dates: start: 20150428

REACTIONS (9)
  - Leukocytosis [None]
  - Hypokalaemia [None]
  - Staphylococcal bacteraemia [None]
  - Hypophosphataemia [None]
  - Sepsis [None]
  - Syncope [None]
  - Pyrexia [None]
  - Hypotension [None]
  - Hypomagnesaemia [None]

NARRATIVE: CASE EVENT DATE: 20150614
